FAERS Safety Report 8530387-X (Version None)
Quarter: 2012Q3

REPORT INFORMATION
  Report Type: 
  Country: None (occurrence: None)
  Receive Date: 20120723
  Receipt Date: 20120710
  Transmission Date: 20120928
  Serious: Yes (Hospitalization, Other)
  Sender: FDA-Public Use
  Company Number: BR-PFIZER INC-2012160174

PATIENT
  Age: 38 Year
  Sex: Female
  Weight: 98 kg

DRUGS (15)
  1. LYRICA [Suspect]
     Indication: INTERVERTEBRAL DISC PROTRUSION
  2. MIDAZOLAM [Concomitant]
     Indication: SLEEP DISORDER
     Dosage: 15 MG, 1X/DAY
  3. LYRICA [Suspect]
     Indication: PAIN
  4. PROPAFENONE HCL [Concomitant]
     Indication: TACHYCARDIA
     Dosage: 300 MG, 2X/DAY
     Dates: end: 20120601
  5. ENALAPRIL [Concomitant]
     Indication: BLOOD PRESSURE INCREASED
     Dosage: TWO TABLETS DAILY
     Dates: start: 20110101
  6. ZOLPIDEM [Concomitant]
     Indication: SLEEP DISORDER
     Dosage: ONE TABLET BEFORE BEDTIME
     Dates: end: 20110101
  7. TANDRILAX [Concomitant]
  8. LYRICA [Suspect]
     Indication: BACK PAIN
     Dosage: 75 MG (ONE CAPSULE), 2X/DAY (EVERY 12 HOURS)
     Route: 048
     Dates: start: 20110703
  9. NEBIVOLOL HCL [Concomitant]
     Indication: TACHYCARDIA
     Dosage: 5 MG, 2X/DAY
     Dates: end: 20120601
  10. TANDRILAX [Concomitant]
     Indication: ANTIINFLAMMATORY THERAPY
  11. TRAMADOL HYDROCHLORIDE [Suspect]
     Indication: SPINAL PAIN
     Dosage: UNK, AS NEEDED
     Dates: start: 20070620
  12. LYRICA [Suspect]
     Indication: SPINAL PAIN
  13. GABAPENTIN [Concomitant]
     Dosage: UNK
  14. ATENOLOL [Concomitant]
     Indication: TACHYCARDIA
     Dosage: 50MG IN THE MORNING AND 25MG AT NIGHT
     Dates: start: 20120601
  15. TANDRILAX [Concomitant]
     Indication: PAIN
     Dosage: 3 TABLETS DAILY
     Dates: start: 20070101

REACTIONS (9)
  - HYPERTENSION [None]
  - VISION BLURRED [None]
  - DRY MOUTH [None]
  - DRUG INEFFECTIVE [None]
  - SPINAL DISORDER [None]
  - CONSTIPATION [None]
  - DEPRESSION [None]
  - WEIGHT INCREASED [None]
  - INSOMNIA [None]
